FAERS Safety Report 10497397 (Version 2)
Quarter: 2014Q4

REPORT INFORMATION
  Report Type: Spontaneous
  Country: US (occurrence: US)
  Receive Date: 20141006
  Receipt Date: 20141107
  Transmission Date: 20150528
  Serious: Yes (Other)
  Sender: FDA-Public Use
  Company Number: US-TEVA-511477USA

PATIENT
  Age: 48 Year
  Sex: Female

DRUGS (1)
  1. COPAXONE [Suspect]
     Active Substance: GLATIRAMER ACETATE
     Indication: MULTIPLE SCLEROSIS
     Dates: start: 20140528

REACTIONS (4)
  - Swelling face [Recovered/Resolved]
  - Injection site reaction [Recovered/Resolved]
  - Wrong technique in drug usage process [Unknown]
  - Bronchospasm [Recovered/Resolved]

NARRATIVE: CASE EVENT DATE: 20140916
